FAERS Safety Report 7118831-6 (Version None)
Quarter: 2010Q4

REPORT INFORMATION
  Report Type: 
  Country: None (occurrence: None)
  Receive Date: 20101123
  Receipt Date: 20101004
  Transmission Date: 20110411
  Serious: No
  Sender: FDA-Public Use
  Company Number: US-KINGPHARMUSA00001-K201001252

PATIENT
  Age: 60 Year
  Sex: Female

DRUGS (1)
  1. FLECTOR [Suspect]
     Indication: ARTHRALGIA
     Dosage: 1 PATCH, QD
     Route: 061
     Dates: start: 20101001, end: 20101001

REACTIONS (1)
  - DYSPEPSIA [None]
